FAERS Safety Report 21721421 (Version 1)
Quarter: 2022Q4

REPORT INFORMATION
  Report Type: Report from Study
  Country: US (occurrence: US)
  Receive Date: 20221213
  Receipt Date: 20221213
  Transmission Date: 20230112
  Serious: Yes (Hospitalization)
  Sender: FDA-Public Use
  Company Number: US-GLAXOSMITHKLINE-US2022AMR160043

PATIENT

DRUGS (1)
  1. BELANTAMAB MAFODOTIN [Suspect]
     Active Substance: BELANTAMAB MAFODOTIN
     Indication: Amyloidosis
     Dosage: 202.5 MG
     Dates: start: 20221005

REACTIONS (4)
  - Heart transplant [Unknown]
  - Keratopathy [Unknown]
  - Product prescribing issue [Unknown]
  - Product use in unapproved indication [Unknown]
